FAERS Safety Report 18962756 (Version 1)
Quarter: 2021Q1

REPORT INFORMATION
  Report Type: Spontaneous
  Country: US (occurrence: US)
  Receive Date: 20210303
  Receipt Date: 20210303
  Transmission Date: 20210420
  Serious: Yes (Hospitalization)
  Sender: FDA-Public Use
  Company Number: None

PATIENT
  Age: 74 Year
  Sex: Male

DRUGS (3)
  1. CAPECITABINE NOT PREVIOUSLY FILLED AT ALLIANCERX [Suspect]
     Active Substance: CAPECITABINE
     Indication: COLON CANCER
     Dosage: ?          OTHER FREQUENCY:AM + PM;?
     Route: 048
  2. CIPROFLOXACIN. [Concomitant]
     Active Substance: CIPROFLOXACIN
  3. SSD CREAM [Concomitant]
     Active Substance: SILVER SULFADIAZINE

REACTIONS (2)
  - Therapy interrupted [None]
  - Localised infection [None]

NARRATIVE: CASE EVENT DATE: 20210226
